FAERS Safety Report 5901891-5 (Version None)
Quarter: 2008Q3

REPORT INFORMATION
  Report Type: 
  Country: None (occurrence: None)
  Receive Date: 20080929
  Receipt Date: 20080922
  Transmission Date: 20090109
  Serious: Yes (Other)
  Sender: FDA-Public Use
  Company Number: PHFR2007GB02039

PATIENT
  Sex: Female
  Weight: 101.15 kg

DRUGS (5)
  1. CLOZARIL [Suspect]
     Indication: SCHIZOPHRENIA
     Route: 048
     Dates: start: 20010820
  2. ABILIFY [Concomitant]
     Dosage: 15MG/DAY
     Route: 048
     Dates: start: 20060401, end: 20070701
  3. ESCITALOPRAM [Concomitant]
     Dates: end: 20070701
  4. PROCYCLIDINE HYDROCHLORIDE 2MG TAB [Concomitant]
     Dates: end: 20070701
  5. INHALERS [Concomitant]

REACTIONS (2)
  - CAESAREAN SECTION [None]
  - DRUG EXPOSURE DURING PREGNANCY [None]
